FAERS Safety Report 12281233 (Version 1)
Quarter: 2016Q2

REPORT INFORMATION
  Report Type: Spontaneous
  Country: US (occurrence: None)
  Receive Date: 20160418
  Receipt Date: 20160418
  Transmission Date: 20160815
  Serious: Yes (Other)
  Sender: FDA-Public Use
  Company Number: None

PATIENT
  Age: 68 Year
  Sex: Female
  Weight: 72.58 kg

DRUGS (12)
  1. FENOFIBRATE. [Suspect]
     Active Substance: FENOFIBRATE
     Indication: HIGH DENSITY LIPOPROTEIN DECREASED
     Dosage: 1 TABLET(S) ONCE A DAY TAKEN BY MOUTH
     Route: 048
     Dates: start: 20160123, end: 20160223
  2. DIPHENHYDRAMINE. [Concomitant]
     Active Substance: DIPHENHYDRAMINE
  3. GABAPENTIN. [Concomitant]
     Active Substance: GABAPENTIN
  4. ATORAVASTATIN [Concomitant]
     Active Substance: ATORVASTATIN
  5. CLONAZEPAM. [Concomitant]
     Active Substance: CLONAZEPAM
  6. STOOL SOFTENERS [Concomitant]
     Active Substance: UNSPECIFIED INGREDIENT
  7. MELOXICAN [Concomitant]
     Active Substance: MELOXICAM
  8. PREDNISONE. [Concomitant]
     Active Substance: PREDNISONE
  9. FENOFIBRATE. [Suspect]
     Active Substance: FENOFIBRATE
     Indication: BLOOD CHOLESTEROL INCREASED
     Dosage: 1 TABLET(S) ONCE A DAY TAKEN BY MOUTH
     Route: 048
     Dates: start: 20160123, end: 20160223
  10. BACLOFEN. [Concomitant]
     Active Substance: BACLOFEN
  11. VITAMIN E [Concomitant]
     Active Substance: .ALPHA.-TOCOPHEROL
  12. TRAMADOL. [Concomitant]
     Active Substance: TRAMADOL

REACTIONS (6)
  - Insomnia [None]
  - Nervous system disorder [None]
  - Pain [None]
  - Mass [None]
  - Erythema [None]
  - Fatigue [None]

NARRATIVE: CASE EVENT DATE: 20160325
